FAERS Safety Report 5127036-X (Version None)
Quarter: 2006Q4

REPORT INFORMATION
  Report Type: 
  Country: None (occurrence: None)
  Receive Date: 20061013
  Receipt Date: 20061010
  Transmission Date: 20070319
  Serious: Yes (Hospitalization, Other)
  Sender: FDA-Public Use
  Company Number: GB-GLAXOSMITHKLINE-B0441890A

PATIENT
  Age: 59 Year
  Sex: Female
  Weight: 65 kg

DRUGS (3)
  1. BUPROPION HCL [Suspect]
     Dosage: 150MG UNKNOWN
     Route: 048
     Dates: start: 20060809, end: 20060914
  2. AMLODIPINE [Concomitant]
     Indication: HYPERTENSION
     Dosage: 10MG UNKNOWN
     Route: 048
     Dates: start: 20050614, end: 20060919
  3. LISINOPRIL [Concomitant]
     Indication: HYPERTENSION
     Dosage: 10MG UNKNOWN
     Route: 048
     Dates: start: 20050721, end: 20060914

REACTIONS (1)
  - RENAL TUBULAR NECROSIS [None]
